FAERS Safety Report 4341301-5 (Version None)
Quarter: 2004Q1

REPORT INFORMATION
  Report Type: 
  Country: None (occurrence: None)
  Receive Date: 20040329
  Receipt Date: 20031204
  Transmission Date: 20041129
  Serious: No
  Sender: FDA-Public Use
  Company Number: 03P-163-0244045-00

PATIENT
  Age: 78 Year
  Sex: Female

DRUGS (8)
  1. HUMIRA [Suspect]
     Indication: RHEUMATOID ARTHRITIS
     Dosage: 40 MG , 1 IN 2 WK, SUBCUTANEOUS
     Route: 058
     Dates: start: 20031020, end: 20031201
  2. DIOVAN [Concomitant]
  3. HYDROCHLOROTHIAZIDE [Concomitant]
  4. CONJUGATED ESTROGEN [Concomitant]
  5. CELECOXIB [Concomitant]
  6. FOLIC ACID [Concomitant]
  7. TOCOPHEROL CONCENTRATE CAP [Concomitant]
  8. ERGOCALCIFEROL [Concomitant]

REACTIONS (2)
  - OEDEMA PERIPHERAL [None]
  - PAIN [None]
